FAERS Safety Report 18144727 (Version 1)
Quarter: 2020Q3

REPORT INFORMATION
  Report Type: Spontaneous
  Country: US (occurrence: US)
  Receive Date: 20200813
  Receipt Date: 20200813
  Transmission Date: 20201103
  Serious: No
  Sender: FDA-Public Use
  Company Number: US-NOVEN PHARMACEUTICALS, INC.-US2020000002

PATIENT

DRUGS (2)
  1. COMBIPATCH [Suspect]
     Active Substance: ESTRADIOL\NORETHINDRONE ACETATE
     Indication: NIGHT SWEATS
     Dosage: 0.05/0.14 MG, UNKNOWN
     Route: 062
     Dates: start: 20200114, end: 20200114
  2. COMBIPATCH [Suspect]
     Active Substance: ESTRADIOL\NORETHINDRONE ACETATE
     Indication: HOT FLUSH
     Dosage: 0.05/0.14 MG, UNKNOWN
     Route: 062
     Dates: start: 201905, end: 20200103

REACTIONS (7)
  - Application site swelling [Unknown]
  - Application site rash [Recovered/Resolved]
  - Application site erythema [Unknown]
  - Application site irritation [Unknown]
  - Application site hypersensitivity [Unknown]
  - Application site vesicles [Unknown]
  - Application site pruritus [Unknown]

NARRATIVE: CASE EVENT DATE: 2019
